FAERS Safety Report 6936733-2 (Version None)
Quarter: 2010Q3

REPORT INFORMATION
  Report Type: 
  Country: None (occurrence: None)
  Receive Date: 20100823
  Receipt Date: 20100812
  Transmission Date: 20110219
  Serious: Yes (Death)
  Sender: FDA-Public Use
  Company Number: GB-CUBIST-2010S1001217

PATIENT
  Age: 72 Year
  Sex: Female

DRUGS (5)
  1. CUBICIN [Suspect]
     Indication: ENDOCARDITIS
  2. CUBICIN [Suspect]
     Indication: STAPHYLOCOCCAL INFECTION
  3. VANCOMYCIN [Concomitant]
     Indication: ENDOCARDITIS
  4. GENTAMICIN [Concomitant]
     Indication: ENDOCARDITIS
  5. RIFAMPIN [Concomitant]
     Indication: ENDOCARDITIS

REACTIONS (1)
  - ENDOCARDITIS [None]
